FAERS Safety Report 26006138 (Version 1)
Quarter: 2025Q4

REPORT INFORMATION
  Report Type: Spontaneous
  Country: US (occurrence: US)
  Receive Date: 20251106
  Receipt Date: 20251106
  Transmission Date: 20260117
  Serious: No
  Sender: INSMED
  Company Number: US-INSMED, INC.-2025-04077-US

PATIENT
  Sex: Female

DRUGS (1)
  1. BRENSOCATIB [Suspect]
     Active Substance: BRENSOCATIB
     Indication: Bronchiectasis
     Dosage: UNK
     Route: 065
     Dates: start: 2025, end: 2025

REACTIONS (1)
  - Gingival swelling [Unknown]

NARRATIVE: CASE EVENT DATE: 20250101
